FAERS Safety Report 6667138-X (Version None)
Quarter: 2010Q2

REPORT INFORMATION
  Report Type: 
  Country: None (occurrence: None)
  Receive Date: 20100405
  Receipt Date: 20100322
  Transmission Date: 20101027
  Serious: No
  Sender: FDA-Public Use
  Company Number: US-B.I. PHARMACEUTICALS,INC./RIDGEFIELD-2010-BP-03350BP

PATIENT
  Age: 65 Year
  Sex: Female

DRUGS (1)
  1. MIRAPEX [Suspect]
     Indication: AFFECTIVE DISORDER
     Dosage: 4 MG
     Route: 048
     Dates: start: 20100301

REACTIONS (1)
  - OEDEMA PERIPHERAL [None]
